FAERS Safety Report 23250187 (Version 3)
Quarter: 2023Q4

REPORT INFORMATION
  Report Type: Spontaneous
  Country: GB (occurrence: GB)
  Receive Date: 20231201
  Receipt Date: 20231227
  Transmission Date: 20240110
  Serious: Yes (Hospitalization, Other)
  Sender: FDA-Public Use
  Company Number: GB-Accord-392080

PATIENT
  Age: 14 Year
  Sex: Female
  Weight: 57 kg

DRUGS (8)
  1. ONDANSETRON [Interacting]
     Active Substance: ONDANSETRON
     Indication: Antiemetic supportive care
     Route: 042
  2. PROPOFOL [Interacting]
     Active Substance: PROPOFOL
     Indication: Induction of anaesthesia
     Route: 042
  3. FENTANYL [Concomitant]
     Active Substance: FENTANYL\FENTANYL CITRATE
     Indication: Induction of anaesthesia
     Route: 042
  4. SEVOFLURANE [Concomitant]
     Active Substance: SEVOFLURANE
     Indication: Maintenance of anaesthesia
     Dosage: 1 MAC IN OXYGEN AND AIR
  5. ACETAMINOPHEN [Concomitant]
     Active Substance: ACETAMINOPHEN
     Indication: Analgesic therapy
     Route: 042
  6. LEVOBUPIVACAINE HYDROCHLORIDE [Concomitant]
     Active Substance: LEVOBUPIVACAINE HYDROCHLORIDE
     Indication: Local anaesthesia
     Dosage: 0.25% INFILTRATION OF 40 ML
     Route: 058
  7. DEXAMETHASONE [Concomitant]
     Active Substance: DEXAMETHASONE
     Indication: Antiemetic supportive care
     Route: 042
  8. OXYGEN [Concomitant]
     Active Substance: OXYGEN
     Indication: Maintenance of anaesthesia

REACTIONS (4)
  - Drug interaction [Recovered/Resolved]
  - Torticollis [Recovered/Resolved]
  - Dystonia [Recovered/Resolved]
  - Oculogyric crisis [Recovered/Resolved]
